FAERS Safety Report 8389349-8 (Version None)
Quarter: 2012Q2

REPORT INFORMATION
  Report Type: 
  Country: None (occurrence: None)
  Receive Date: 20120528
  Receipt Date: 20120523
  Transmission Date: 20120825
  Serious: Yes (Life-Threatening, Hospitalization)
  Sender: FDA-Public Use
  Company Number: PHHO2012HU007901

PATIENT
  Sex: Male
  Weight: 126 kg

DRUGS (4)
  1. BLINDED NO TREATMENT RECEIVED [Suspect]
     Indication: CARDIAC FAILURE CHRONIC
     Dosage: NO TREATMENT
  2. VALSARTAN [Suspect]
     Indication: CARDIAC FAILURE CHRONIC
     Dosage: NO TREATMENT
  3. VALSARTAN [Suspect]
     Indication: CARDIAC FAILURE CHRONIC
     Dosage: UNK
     Route: 048
     Dates: start: 20120425, end: 20120522
  4. ENALAPRIL MALEATE [Suspect]
     Indication: CARDIAC FAILURE CHRONIC
     Dosage: NO TREATMENT

REACTIONS (2)
  - CARDIAC FAILURE [None]
  - CELLULITIS [None]
